FAERS Safety Report 14379098 (Version 1)
Quarter: 2018Q1

REPORT INFORMATION
  Report Type: Spontaneous
  Country: US (occurrence: US)
  Receive Date: 20180112
  Receipt Date: 20180112
  Transmission Date: 20180509
  Serious: No
  Sender: FDA-Public Use
  Company Number: US-TEVA-2018-US-843640

PATIENT
  Sex: Female

DRUGS (1)
  1. QVAR [Suspect]
     Active Substance: BECLOMETHASONE DIPROPIONATE
     Indication: BRONCHITIS
     Route: 065
     Dates: start: 201702, end: 201703

REACTIONS (3)
  - Alveolitis [Unknown]
  - Cough [Unknown]
  - Bronchitis [Unknown]

NARRATIVE: CASE EVENT DATE: 20171210
